FAERS Safety Report 7012478-8 (Version None)
Quarter: 2010Q3

REPORT INFORMATION
  Report Type: 
  Country: None (occurrence: None)
  Receive Date: 20100923
  Receipt Date: 20100923
  Transmission Date: 20110219
  Serious: Yes (Life-Threatening, Hospitalization)
  Sender: FDA-Public Use
  Company Number: None

PATIENT
  Age: 73 Year
  Sex: Female
  Weight: 61.2356 kg

DRUGS (1)
  1. NIASPAN [Suspect]
     Indication: DIABETES MELLITUS
     Dosage: 2 TABS. @EVENING EVERY EVENING MOUTH
     Route: 048
     Dates: start: 20100604

REACTIONS (5)
  - ABNORMAL SENSATION IN EYE [None]
  - BLOOD PRESSURE DECREASED [None]
  - FEELING HOT [None]
  - GENERALISED ERYTHEMA [None]
  - PRURITUS GENERALISED [None]
